FAERS Safety Report 9874010 (Version 2)
Quarter: 2014Q1

REPORT INFORMATION
  Report Type: Other
  Country: None (occurrence: US)
  Receive Date: 20140206
  Receipt Date: 20140206
  Transmission Date: 20141002
  Serious: No
  Sender: FDA-Public Use
  Company Number: US-ACORDA-ACO_34973_2013

PATIENT
  Sex: Male
  Weight: 95.24 kg

DRUGS (4)
  1. AMPYRA [Suspect]
     Indication: GAIT DISTURBANCE
     Dosage: 10 MG, BID
     Route: 048
     Dates: start: 201210
  2. TYSABRI [Concomitant]
     Indication: MULTIPLE SCLEROSIS
     Dosage: 300MG/15ML, EVERY 5 WEEKS
     Dates: start: 20070921, end: 20130613
  3. LORTAB [Concomitant]
     Indication: MULTIPLE SCLEROSIS
     Dosage: 7.5-500 MG, Q 4-6 HRS PRN
     Route: 048
     Dates: start: 20110318
  4. ZANAFLEX [Concomitant]
     Indication: MULTIPLE SCLEROSIS
     Dosage: 4 MG, 2-3 TIMES DAILY PRN
     Route: 048
     Dates: start: 20120229

REACTIONS (1)
  - Memory impairment [Recovering/Resolving]
